FAERS Safety Report 7199723-3 (Version None)
Quarter: 2010Q4

REPORT INFORMATION
  Report Type: 
  Country: None (occurrence: None)
  Receive Date: 20101228
  Receipt Date: 20101217
  Transmission Date: 20110411
  Serious: Yes (Hospitalization)
  Sender: FDA-Public Use
  Company Number: JP-ROCHE-675813

PATIENT
  Sex: Female

DRUGS (27)
  1. TOCILIZUMAB [Suspect]
     Indication: RHEUMATOID ARTHRITIS
     Route: 041
     Dates: start: 20080825, end: 20080825
  2. TOCILIZUMAB [Suspect]
     Route: 041
     Dates: start: 20080922, end: 20080922
  3. TOCILIZUMAB [Suspect]
     Route: 041
     Dates: start: 20081020, end: 20081020
  4. TOCILIZUMAB [Suspect]
     Route: 041
     Dates: start: 20081117, end: 20081117
  5. TOCILIZUMAB [Suspect]
     Route: 041
     Dates: start: 20081215, end: 20081215
  6. TOCILIZUMAB [Suspect]
     Route: 041
     Dates: start: 20090119, end: 20090119
  7. TOCILIZUMAB [Suspect]
     Route: 041
     Dates: start: 20090216, end: 20090216
  8. TOCILIZUMAB [Suspect]
     Route: 041
     Dates: start: 20090323, end: 20090323
  9. TOCILIZUMAB [Suspect]
     Route: 041
     Dates: start: 20090430, end: 20090430
  10. TOCILIZUMAB [Suspect]
     Route: 041
     Dates: start: 20090601, end: 20090601
  11. TOCILIZUMAB [Suspect]
     Route: 041
     Dates: start: 20090706, end: 20090706
  12. TOCILIZUMAB [Suspect]
     Route: 041
     Dates: start: 20090803, end: 20090803
  13. TOCILIZUMAB [Suspect]
     Route: 041
     Dates: start: 20090903, end: 20090903
  14. TOCILIZUMAB [Suspect]
     Dosage: DRUG DISCONTINUED
     Route: 041
     Dates: start: 20091008, end: 20091008
  15. METHOTREXATE [Concomitant]
     Dosage: FORM: PERORAL AGENT
     Route: 048
     Dates: start: 20080610, end: 20080714
  16. METHOTREXATE [Concomitant]
     Dosage: FORM: PERORAL AGENT
     Route: 048
     Dates: start: 20080715, end: 20081117
  17. METHOTREXATE [Concomitant]
     Dosage: FORM: PERORAL AGENT
     Route: 048
     Dates: start: 20081118, end: 20081215
  18. METHOTREXATE [Concomitant]
     Dosage: FORM: PERORAL AGENT
     Route: 048
     Dates: start: 20081216
  19. PREDNISOLONE [Concomitant]
     Dosage: FORM: PERORAL AGENT
     Route: 048
     Dates: start: 20081020, end: 20081116
  20. PREDNISOLONE [Concomitant]
     Dosage: FORM: PERORAL AGENT
     Route: 048
     Dates: start: 20081117, end: 20081215
  21. PREDNISOLONE [Concomitant]
     Dosage: FORM: PERORAL AGENT
     Route: 048
     Dates: start: 20081216
  22. PREDONINE [Concomitant]
     Route: 048
     Dates: start: 20080610, end: 20081019
  23. VOLTAREN [Concomitant]
     Route: 054
     Dates: start: 20080610, end: 20081116
  24. CELCOX [Concomitant]
     Route: 048
     Dates: start: 20080610
  25. FOLIAMIN [Concomitant]
     Dosage: FORM: PERORAL AGENT
     Route: 048
     Dates: start: 20080825
  26. GASTER D [Concomitant]
     Route: 048
     Dates: start: 20080825
  27. MEPTIN [Concomitant]
     Dosage: NOTE: SINGLE USE AND UNCERTAIN DOSAGE
     Route: 055
     Dates: start: 20081215

REACTIONS (2)
  - BREAST CANCER [None]
  - BREAST CANCER FEMALE [None]
